FAERS Safety Report 25955844 (Version 2)
Quarter: 2025Q4

REPORT INFORMATION
  Report Type: Spontaneous
  Country: JP (occurrence: JP)
  Receive Date: 20251024
  Receipt Date: 20251103
  Transmission Date: 20260118
  Serious: Yes (Hospitalization)
  Sender: ROCHE
  Company Number: JP-ROCHE-10000418293

PATIENT
  Age: 14 Year
  Sex: Female

DRUGS (2)
  1. RITUXIMAB [Suspect]
     Active Substance: RITUXIMAB
     Indication: Nephrotic syndrome
     Route: 042
  2. RISANKIZUMAB [Concomitant]
     Active Substance: RISANKIZUMAB

REACTIONS (1)
  - Crohn^s disease [Recovering/Resolving]
